FAERS Safety Report 8943716 (Version 2)
Quarter: 2013Q3

REPORT INFORMATION
  Report Type: Report from Study
  Country: MX (occurrence: MX)
  Receive Date: 20121204
  Receipt Date: 20130731
  Transmission Date: 20140515
  Serious: Yes (Hospitalization, Other)
  Sender: FDA-Public Use
  Company Number: PHHY2012MX110558

PATIENT
  Age: 52 Year
  Sex: Female

DRUGS (3)
  1. SANDOSTATIN LAR [Suspect]
     Indication: ACROMEGALY
     Dosage: 1 DF, MONTHLY
     Dates: start: 20121110, end: 20121111
  2. SANDOSTATIN LAR [Suspect]
     Dosage: UNK, MONTHLY
     Route: 030
     Dates: start: 201211
  3. INSULIN [Concomitant]
     Dosage: 10 U, UNK
     Dates: start: 20121110, end: 20121111

REACTIONS (6)
  - Bradycardia [Not Recovered/Not Resolved]
  - Abdominal pain upper [Not Recovered/Not Resolved]
  - Flatulence [Not Recovered/Not Resolved]
  - Faeces discoloured [Not Recovered/Not Resolved]
  - Muscle spasms [Unknown]
  - Hepatic pain [Not Recovered/Not Resolved]
